FAERS Safety Report 16644840 (Version 9)
Quarter: 2021Q1

REPORT INFORMATION
  Report Type: Spontaneous
  Country: US (occurrence: US)
  Receive Date: 20190729
  Receipt Date: 20210218
  Transmission Date: 20210419
  Serious: No
  Sender: FDA-Public Use
  Company Number: US-SA-2019SA201819

PATIENT
  Age: 63 Year
  Sex: Female

DRUGS (2)
  1. DUPIXENT [Suspect]
     Active Substance: DUPILUMAB
     Indication: DERMATITIS ATOPIC
     Dosage: 300 MG, QOW
     Route: 058
     Dates: start: 20180327
  2. DUPIXENT [Suspect]
     Active Substance: DUPILUMAB
     Dosage: 300 MG, QOW
     Route: 058

REACTIONS (19)
  - Illness [Unknown]
  - Skin haemorrhage [Recovering/Resolving]
  - Dry skin [Unknown]
  - Dizziness [Not Recovered/Not Resolved]
  - Asthenia [Unknown]
  - Cough [Unknown]
  - Tooth abscess [Recovering/Resolving]
  - Eyelid rash [Unknown]
  - Swelling face [Recovering/Resolving]
  - Lung disorder [Unknown]
  - Eyelid disorder [Unknown]
  - Erythema [Recovering/Resolving]
  - Skin fissures [Recovering/Resolving]
  - Chronic obstructive pulmonary disease [Unknown]
  - Periorbital irritation [Unknown]
  - Fungal infection [Unknown]
  - Visual impairment [Unknown]
  - Condition aggravated [Unknown]
  - Erythema [Unknown]

NARRATIVE: CASE EVENT DATE: 202012
